FAERS Safety Report 5012249-8 (Version None)
Quarter: 2006Q2

REPORT INFORMATION
  Report Type: 
  Country: None (occurrence: None)
  Receive Date: 20060524
  Receipt Date: 20060520
  Transmission Date: 20061013
  Serious: Yes (Hospitalization)
  Sender: FDA-Public Use
  Company Number: 222608

PATIENT
  Age: 45 Year
  Sex: Female

DRUGS (7)
  1. AVASTIN [Suspect]
     Indication: COLORECTAL CANCER METASTATIC
     Dosage: 7.5 MG/KG, Q3W, INTRAVENOUS
     Route: 042
     Dates: start: 20060202
  2. CAPECITABINE (CAPECITABINE) [Suspect]
     Indication: COLORECTAL CANCER METASTATIC
     Dosage: 3600 MG, QD, ORAL
     Route: 048
  3. ASPIRIN [Concomitant]
  4. ESOMEPRAZOLE (ESOMEPRAZOLE MAGNESIUM) [Concomitant]
  5. DIAZEPAM [Concomitant]
  6. PYRIDOXINE HCL [Concomitant]
  7. MAGNESIUM ASPARTATE (MAGNESIUM ASPARTATE) [Concomitant]

REACTIONS (1)
  - PYREXIA [None]
